FAERS Safety Report 17202515 (Version 2)
Quarter: 2021Q1

REPORT INFORMATION
  Report Type: Spontaneous
  Country: US (occurrence: US)
  Receive Date: 20191226
  Receipt Date: 20210226
  Transmission Date: 20210419
  Serious: Yes (Hospitalization, Other)
  Sender: FDA-Public Use
  Company Number: US-ASTRAZENECA-2019SF86800

PATIENT
  Age: 75 Year
  Sex: Female

DRUGS (109)
  1. CLINDAMYCIN. [Concomitant]
     Active Substance: CLINDAMYCIN
  2. NYSTATIN. [Concomitant]
     Active Substance: NYSTATIN
  3. VIGAMOX [Concomitant]
     Active Substance: MOXIFLOXACIN HYDROCHLORIDE
  4. CLARITHROMYCIN. [Concomitant]
     Active Substance: CLARITHROMYCIN
     Indication: BACTERIAL INFECTION
  5. MOMETASONE [Concomitant]
     Active Substance: MOMETASONE
     Indication: DRUG ABUSE
  6. PROZAC [Concomitant]
     Active Substance: FLUOXETINE HYDROCHLORIDE
  7. POTASSIUM CHLORIDE. [Concomitant]
     Active Substance: POTASSIUM CHLORIDE
  8. CIPROFLOXACIN. [Concomitant]
     Active Substance: CIPROFLOXACIN
  9. FOLIC ACID. [Concomitant]
     Active Substance: FOLIC ACID
  10. IPRATROPIUM [Concomitant]
     Active Substance: IPRATROPIUM
  11. KETOCONAZOLE. [Concomitant]
     Active Substance: KETOCONAZOLE
  12. OSMOPREP [Concomitant]
     Active Substance: SODIUM PHOSPHATE, DIBASIC, ANHYDROUS\SODIUM PHOSPHATE, MONOBASIC, MONOHYDRATE
  13. PRILOSEC [Suspect]
     Active Substance: OMEPRAZOLE MAGNESIUM
     Indication: GASTROOESOPHAGEAL REFLUX DISEASE
     Route: 048
     Dates: start: 2001, end: 2006
  14. PROVENTIL HFA [Concomitant]
     Active Substance: ALBUTEROL SULFATE
     Indication: ASTHMA
  15. VITAMIN D [Concomitant]
     Active Substance: VITAMIN D NOS
  16. CELEBREX [Concomitant]
     Active Substance: CELECOXIB
  17. ERYTHROMYCIN. [Concomitant]
     Active Substance: ERYTHROMYCIN
  18. AMBIEN [Concomitant]
     Active Substance: ZOLPIDEM TARTRATE
  19. LEVAQUIN [Concomitant]
     Active Substance: LEVOFLOXACIN
  20. GLIMEPIRIDE. [Concomitant]
     Active Substance: GLIMEPIRIDE
  21. SPIRONOLACTONE. [Concomitant]
     Active Substance: SPIRONOLACTONE
  22. ISOSORBIDE MONONITRATE. [Concomitant]
     Active Substance: ISOSORBIDE MONONITRATE
  23. BUMEX [Concomitant]
     Active Substance: BUMETANIDE
  24. ALBUTEROL SULFATE. [Concomitant]
     Active Substance: ALBUTEROL SULFATE
  25. CYCLOBENZAPRINE. [Concomitant]
     Active Substance: CYCLOBENZAPRINE
  26. CLONIDINE. [Concomitant]
     Active Substance: CLONIDINE
  27. DILTIAZEM. [Concomitant]
     Active Substance: DILTIAZEM
  28. CITALOPRAM [Concomitant]
     Active Substance: CITALOPRAM HYDROBROMIDE
  29. DEXAMETHASONE. [Concomitant]
     Active Substance: DEXAMETHASONE
  30. HYDROMET [Concomitant]
     Active Substance: HOMATROPINE METHYLBROMIDE\HYDROCODONE BITARTRATE
  31. BESIVANCE [Concomitant]
     Active Substance: BESIFLOXACIN
  32. MOVIPREP [Concomitant]
     Active Substance: ASCORBIC ACID\POLYETHYLENE GLYCOL 3350\POTASSIUM CHLORIDE\SODIUM ASCORBATE\SODIUM CHLORIDE\SODIUM SULFATE
  33. PREVACID [Suspect]
     Active Substance: LANSOPRAZOLE
     Indication: GASTROOESOPHAGEAL REFLUX DISEASE
     Route: 065
     Dates: start: 200301, end: 201812
  34. PROTONIX [Suspect]
     Active Substance: PANTOPRAZOLE SODIUM
     Indication: GASTROOESOPHAGEAL REFLUX DISEASE
     Route: 065
     Dates: start: 200301, end: 201812
  35. FLUTICASONE PROP [Concomitant]
     Active Substance: FLUTICASONE PROPIONATE
  36. IODINE. [Concomitant]
     Active Substance: IODINE
  37. PREDNISONE. [Concomitant]
     Active Substance: PREDNISONE
  38. PSEUDOEPHEDRINE. [Concomitant]
     Active Substance: PSEUDOEPHEDRINE HYDROCHLORIDE
  39. AMLODIPINE BESYLATE. [Concomitant]
     Active Substance: AMLODIPINE BESYLATE
  40. HYDRALAZINE [Concomitant]
     Active Substance: HYDRALAZINE HYDROCHLORIDE
  41. TRIMETHOPRIM. [Concomitant]
     Active Substance: TRIMETHOPRIM
  42. CLOTRIMAZOLE AND BETAMETHASONE DIPROPIONATE [Concomitant]
     Active Substance: BETAMETHASONE\BETAMETHASONE DIPROPIONATE\CLOTRIMAZOLE
  43. HYDROCODONE BITARTRATE AND ACETAMINOPHEN [Concomitant]
     Active Substance: ACETAMINOPHEN\HYDROCODONE BITARTRATE
  44. ACETAMINOPHEN AND CODEINE [Concomitant]
     Active Substance: ACETAMINOPHEN\CODEINE PHOSPHATE
  45. LYRICA [Concomitant]
     Active Substance: PREGABALIN
  46. DUREZOL [Concomitant]
     Active Substance: DIFLUPREDNATE
  47. FEXOFENADINE [Concomitant]
     Active Substance: FEXOFENADINE HYDROCHLORIDE
  48. BUDEPRION [Concomitant]
     Active Substance: BUPROPION HYDROCHLORIDE
  49. PRILOSEC [Suspect]
     Active Substance: OMEPRAZOLE MAGNESIUM
     Indication: GASTROOESOPHAGEAL REFLUX DISEASE
     Route: 048
     Dates: start: 200301, end: 201812
  50. PROTONIX [Suspect]
     Active Substance: PANTOPRAZOLE SODIUM
     Indication: GASTROOESOPHAGEAL REFLUX DISEASE
     Route: 065
     Dates: start: 2000, end: 2006
  51. PRESERVISION [Concomitant]
     Active Substance: MINERALS\VITAMINS
     Indication: VISUAL IMPAIRMENT
  52. LOPRESSOR [Concomitant]
     Active Substance: METOPROLOL TARTRATE
  53. GABAPENTIN. [Concomitant]
     Active Substance: GABAPENTIN
  54. NOVOLOG [Concomitant]
     Active Substance: INSULIN ASPART
  55. TORSEMIDE. [Concomitant]
     Active Substance: TORSEMIDE
  56. SPIRIVA [Concomitant]
     Active Substance: TIOTROPIUM BROMIDE MONOHYDRATE
  57. VOLTAREN [Concomitant]
     Active Substance: DICLOFENAC SODIUM
  58. GUAIFENESIN. [Concomitant]
     Active Substance: GUAIFENESIN
  59. IBUPROFEN. [Concomitant]
     Active Substance: IBUPROFEN
  60. ILEVRO [Concomitant]
     Active Substance: NEPAFENAC
  61. NORETHINDRONE. [Concomitant]
     Active Substance: NORETHINDRONE
  62. VITAMIN D3 [Concomitant]
     Active Substance: CHOLECALCIFEROL
     Indication: HYPOVITAMINOSIS
  63. ASPIRIN. [Concomitant]
     Active Substance: ASPIRIN
  64. PENICILLIN [Concomitant]
     Active Substance: PENICILLIN
  65. ADVAIR HFA [Concomitant]
     Active Substance: FLUTICASONE PROPIONATE\SALMETEROL XINAFOATE
  66. CALCIUM [Concomitant]
     Active Substance: CALCIUM
  67. CYCLOPENTOLATE. [Concomitant]
     Active Substance: CYCLOPENTOLATE
  68. CEFAZOLIN [Concomitant]
     Active Substance: CEFAZOLIN
  69. NITROFURANTOIN. [Concomitant]
     Active Substance: NITROFURANTOIN
  70. IPRATROPI/ALB [Concomitant]
  71. FLUOCINONIDE. [Concomitant]
     Active Substance: FLUOCINONIDE
  72. NEXIUM [Suspect]
     Active Substance: ESOMEPRAZOLE MAGNESIUM
     Indication: GASTROOESOPHAGEAL REFLUX DISEASE
     Route: 048
     Dates: start: 200301, end: 201812
  73. NEXIUM [Suspect]
     Active Substance: ESOMEPRAZOLE MAGNESIUM
     Indication: GASTROOESOPHAGEAL REFLUX DISEASE
     Route: 048
     Dates: start: 2001, end: 2006
  74. PREVACID [Suspect]
     Active Substance: LANSOPRAZOLE
     Indication: GASTROOESOPHAGEAL REFLUX DISEASE
     Route: 065
     Dates: start: 2000, end: 2018
  75. PROPOXYPHENE. [Concomitant]
     Active Substance: PROPOXYPHENE
     Indication: ANALGESIC THERAPY
  76. VITAMIN C [Concomitant]
     Active Substance: ASCORBIC ACID
     Indication: HYPOVITAMINOSIS
  77. LOPID [Concomitant]
     Active Substance: GEMFIBROZIL
  78. BYDUREON [Concomitant]
     Active Substance: EXENATIDE
  79. SULFONAMIDE [Concomitant]
     Active Substance: UNSPECIFIED INGREDIENT
  80. DIGOXIN. [Concomitant]
     Active Substance: DIGOXIN
  81. DOXYCYCLINE HYCLATE. [Concomitant]
     Active Substance: DOXYCYCLINE HYCLATE
  82. GLUCAGON. [Concomitant]
     Active Substance: GLUCAGON
  83. CODEINE [Concomitant]
     Active Substance: CODEINE
  84. BENZONATATE. [Concomitant]
     Active Substance: BENZONATATE
  85. PROVENTIL HFA [Concomitant]
     Active Substance: ALBUTEROL SULFATE
     Indication: CHRONIC OBSTRUCTIVE PULMONARY DISEASE
  86. STOOL SOFTENER (DOCUSATE) [Concomitant]
     Active Substance: DOCUSATE
  87. ELIQUIS [Concomitant]
     Active Substance: APIXABAN
  88. BOTOX [Concomitant]
     Active Substance: ONABOTULINUMTOXINA
  89. DULOXETINE. [Concomitant]
     Active Substance: DULOXETINE
  90. COLCHICINE. [Concomitant]
     Active Substance: COLCHICINE
  91. STIOLTO RESPIMAT [Concomitant]
     Active Substance: OLODATEROL HYDROCHLORIDE\TIOTROPIUM BROMIDE MONOHYDRATE
  92. CHLORHEXIDINE [Concomitant]
     Active Substance: CHLORHEXIDINE
  93. PRILOSEC [Suspect]
     Active Substance: OMEPRAZOLE MAGNESIUM
     Indication: GASTROOESOPHAGEAL REFLUX DISEASE
     Dosage: GENERIC
     Route: 065
  94. PROTONIX [Suspect]
     Active Substance: PANTOPRAZOLE SODIUM
     Indication: GASTROOESOPHAGEAL REFLUX DISEASE
     Dosage: GEENRIC
     Route: 065
     Dates: start: 20100317, end: 20100511
  95. TYLENOL [Concomitant]
     Active Substance: ACETAMINOPHEN
     Indication: BACK PAIN
  96. VITAMIN B12 [Concomitant]
     Active Substance: CYANOCOBALAMIN
     Indication: HYPOVITAMINOSIS
  97. LOSARTAN. [Concomitant]
     Active Substance: LOSARTAN
  98. EPIPEN [Concomitant]
     Active Substance: EPINEPHRINE
  99. LANTUS [Concomitant]
     Active Substance: INSULIN GLARGINE
  100. HUMALOG [Concomitant]
     Active Substance: INSULIN LISPRO
  101. METFORMIN HYDROCHLORIDE. [Concomitant]
     Active Substance: METFORMIN HYDROCHLORIDE
  102. REGLAN [Concomitant]
     Active Substance: METOCLOPRAMIDE HYDROCHLORIDE
  103. METHYLPREDNISOLONE. [Concomitant]
     Active Substance: METHYLPREDNISOLONE
  104. MECLIZINE [Concomitant]
     Active Substance: MECLIZINE HYDROCHLORIDE
  105. FLONASE [Concomitant]
     Active Substance: FLUTICASONE PROPIONATE
  106. TRESIBA [Concomitant]
     Active Substance: INSULIN DEGLUDEC
  107. HYDRALAZINE HYDROCHLORIDE. [Concomitant]
     Active Substance: HYDRALAZINE HYDROCHLORIDE
  108. GENTAMICIN. [Concomitant]
     Active Substance: GENTAMICIN
  109. MUPIROCIN. [Concomitant]
     Active Substance: MUPIROCIN

REACTIONS (4)
  - Nephrogenic anaemia [Unknown]
  - Hyperparathyroidism secondary [Unknown]
  - Chronic kidney disease [Not Recovered/Not Resolved]
  - Gastrooesophageal reflux disease [Not Recovered/Not Resolved]

NARRATIVE: CASE EVENT DATE: 2016
